FAERS Safety Report 4425606-5 (Version None)
Quarter: 2004Q3

REPORT INFORMATION
  Report Type: 
  Country: None (occurrence: None)
  Receive Date: 20040719
  Receipt Date: 20030919
  Transmission Date: 20050211
  Serious: Yes (Hospitalization)
  Sender: FDA-Public Use
  Company Number: 180674

PATIENT
  Age: 38 Year
  Sex: Female
  Weight: 58.9676 kg

DRUGS (5)
  1. AVONEX [Suspect]
     Indication: MULTIPLE SCLEROSIS
     Dosage: 30 MCG QW IM
     Route: 030
     Dates: start: 19990101, end: 20010101
  2. BACLOFEN [Concomitant]
  3. PRILOSEC [Concomitant]
  4. RITALIN [Concomitant]
  5. MIGRANAL ^SANDOZ^ [Concomitant]

REACTIONS (4)
  - DEPRESSION [None]
  - HEADACHE [None]
  - MULTIPLE SCLEROSIS [None]
  - PAIN EXACERBATED [None]
